FAERS Safety Report 8953210 (Version 1)
Quarter: 2012Q4

REPORT INFORMATION
  Report Type: 
  Country: HR (occurrence: HR)
  Receive Date: 20121206
  Receipt Date: 20121206
  Transmission Date: 20130627
  Serious: Yes (Other)
  Sender: FDA-Public Use
  Company Number: HR-009507513-1212HRV001000

PATIENT
  Age: 51 Year
  Sex: Female

DRUGS (1)
  1. LIPEX [Suspect]
     Indication: HYPERLIPIDAEMIA
     Dosage: 20 mg, qd
     Route: 048
     Dates: start: 2009, end: 201111

REACTIONS (9)
  - Tremor [Recovered/Resolved]
  - Myalgia [Recovered/Resolved]
  - Musculoskeletal stiffness [Recovered/Resolved]
  - Muscular weakness [Recovered/Resolved]
  - Muscle atrophy [Recovering/Resolving]
  - Gait disturbance [Recovering/Resolving]
  - Palpitations [Recovered/Resolved]
  - Chest discomfort [Recovered/Resolved]
  - Blood creatine phosphokinase increased [Unknown]
